FAERS Safety Report 5607365-3 (Version None)
Quarter: 2008Q1

REPORT INFORMATION
  Report Type: 
  Country: None (occurrence: None)
  Receive Date: 20080130
  Receipt Date: 20080118
  Transmission Date: 20080703
  Serious: Yes (Death)
  Sender: FDA-Public Use
  Company Number: US-ELI_LILLY_AND_COMPANY-US200711004617

PATIENT
  Age: 50 Year
  Sex: Male

DRUGS (4)
  1. XIGRIS [Suspect]
     Route: 042
     Dates: start: 20071013, end: 20071017
  2. HYDROCORTISONE [Concomitant]
  3. PROTONIX [Concomitant]
  4. OXYGEN [Concomitant]

REACTIONS (2)
  - SEPTIC SHOCK [None]
  - SUBARACHNOID HAEMORRHAGE [None]
